FAERS Safety Report 5018522-1 (Version None)
Quarter: 2006Q2

REPORT INFORMATION
  Report Type: 
  Country: None (occurrence: None)
  Receive Date: 20060414
  Receipt Date: 20060102
  Transmission Date: 20061013
  Serious: No
  Sender: FDA-Public Use
  Company Number: 2006SP000008

PATIENT
  Age: 39 Year
  Sex: Female
  Weight: 61.2356 kg

DRUGS (7)
  1. LUNESTA [Suspect]
     Indication: ANXIETY
     Dosage: 3 MG;ORAL
     Route: 048
     Dates: start: 20051201
  2. LUNESTA [Suspect]
     Indication: INSOMNIA
     Dosage: 3 MG;ORAL
     Route: 048
     Dates: start: 20051201
  3. LUNESTA [Suspect]
     Indication: STRESS
     Dosage: 3 MG;ORAL
     Route: 048
     Dates: start: 20051201
  4. DOXYCYCLINE [Concomitant]
  5. SULFAMETHOXAZOLE [Concomitant]
  6. FLUCONAZOLE [Concomitant]
  7. AMITRIPTYLINE HCL [Concomitant]

REACTIONS (1)
  - DYSGEUSIA [None]
